FAERS Safety Report 9805473 (Version 1)
Quarter: 2014Q1

REPORT INFORMATION
  Report Type: Spontaneous
  Country: US (occurrence: None)
  Receive Date: 20140108
  Receipt Date: 20140108
  Transmission Date: 20141002
  Serious: Yes (Other)
  Sender: FDA-Public Use
  Company Number: None

PATIENT
  Age: 57 Year
  Sex: Female
  Weight: 58.97 kg

DRUGS (1)
  1. MIRVASO [Suspect]
     Indication: ROSACEA
     Dosage: PEA SIZE ONCE DAILY APPLIED TO A SURFACE, USUALLY THE SKIN.
     Dates: start: 20131207, end: 20140107

REACTIONS (2)
  - Flushing [None]
  - Product substitution issue [None]
